FAERS Safety Report 4369909-1 (Version None)
Quarter: 2004Q2

REPORT INFORMATION
  Report Type: 
  Country: None (occurrence: None)
  Receive Date: 20040525
  Receipt Date: 20040511
  Transmission Date: 20050107
  Serious: Yes (Life-Threatening)
  Sender: FDA-Public Use
  Company Number: GB-JNJFOC-20040501807

PATIENT
  Age: 71 Year
  Sex: Male
  Weight: 90 kg

DRUGS (2)
  1. REMICADE [Suspect]
     Indication: RHEUMATOID ARTHRITIS
     Dosage: 250 MG, INTRAVENOUS
     Route: 042
     Dates: start: 20030701, end: 20031101
  2. METHOTREXATE [Concomitant]

REACTIONS (1)
  - OESOPHAGEAL CARCINOMA [None]
